FAERS Safety Report 10200810 (Version 11)
Quarter: 2016Q3

REPORT INFORMATION
  Report Type: Report from Study
  Country: GB (occurrence: GB)
  Receive Date: 20140528
  Receipt Date: 20160928
  Transmission Date: 20161108
  Serious: Yes (Life-Threatening, Hospitalization, Other)
  Sender: FDA-Public Use
  Company Number: GB-ROCHE-1343538

PATIENT
  Age: 65 Year
  Sex: Female
  Weight: 52.8 kg

DRUGS (21)
  1. DEXAMETHASONE. [Concomitant]
     Active Substance: DEXAMETHASONE
     Route: 065
     Dates: start: 20131231, end: 20140103
  2. TINZAPARIN [Concomitant]
     Active Substance: TINZAPARIN
     Route: 058
     Dates: start: 20131220, end: 20140127
  3. PRO-CAL SHOT [Concomitant]
     Route: 065
     Dates: start: 20131227, end: 20140103
  4. BEVACIZUMAB [Suspect]
     Active Substance: BEVACIZUMAB
     Indication: COLORECTAL ADENOCARCINOMA
     Dosage: FORM OF ADMINISTRATION, AS PER PROTOCOL.?DATE OF LAST DOSE OF BEVACIZUMAB THERAPY: 05/DEC/2013
     Route: 042
     Dates: start: 20130912, end: 20131205
  5. HALOPERIDOL. [Concomitant]
     Active Substance: HALOPERIDOL
     Route: 058
     Dates: start: 20131230, end: 20140102
  6. VITAMIN K [Concomitant]
     Active Substance: PHYTONADIONE
     Route: 042
     Dates: start: 20131221, end: 201401
  7. CAPECITABINE. [Suspect]
     Active Substance: CAPECITABINE
     Indication: CHEMOTHERAPY
     Dosage: DAILY FOR 14 DAYS OUT OF EVERY 21 DAYS
     Route: 048
     Dates: start: 20130912, end: 20131217
  8. PARACETAMOL [Concomitant]
     Active Substance: ACETAMINOPHEN
     Indication: PAIN
     Route: 048
     Dates: start: 20131228, end: 20131231
  9. MORPHINE [Concomitant]
     Active Substance: MORPHINE
     Indication: PAIN
     Dosage: 1-10 MG
     Route: 042
     Dates: start: 20131222, end: 20131223
  10. BIOTENE ORALBALANCE [Concomitant]
     Route: 065
     Dates: start: 20140103, end: 20140203
  11. TINZAPARIN [Concomitant]
     Active Substance: TINZAPARIN
     Route: 065
     Dates: start: 20131220, end: 20140102
  12. NYSTATIN. [Concomitant]
     Active Substance: NYSTATIN
     Route: 048
     Dates: start: 20131219, end: 20131230
  13. CYCLIZINE [Concomitant]
     Active Substance: CYCLIZINE
     Indication: MALAISE
     Route: 048
     Dates: start: 20131229, end: 20140102
  14. LANSOPRAZOLE. [Concomitant]
     Active Substance: LANSOPRAZOLE
     Indication: NAUSEA
     Route: 048
     Dates: start: 20131217
  15. METOPROLOL. [Concomitant]
     Active Substance: METOPROLOL
     Route: 048
     Dates: start: 20131222, end: 20131223
  16. DEXAMETHASONE. [Concomitant]
     Active Substance: DEXAMETHASONE
     Route: 065
     Dates: start: 20140130, end: 20140307
  17. SUCRALFATE. [Concomitant]
     Active Substance: SUCRALFATE
     Indication: GASTROINTESTINAL DISORDER
     Route: 065
     Dates: start: 20131228, end: 20140320
  18. GTN [Concomitant]
     Active Substance: NITROGLYCERIN
     Dosage: 1-2 SPRAY
     Route: 048
     Dates: start: 20131222, end: 201312
  19. LOPERAMIDE [Concomitant]
     Active Substance: LOPERAMIDE
     Indication: GASTROINTESTINAL DISORDER
     Route: 048
     Dates: start: 20131223, end: 20140103
  20. OXALIPLATIN. [Suspect]
     Active Substance: OXALIPLATIN
     Indication: CHEMOTHERAPY
     Route: 042
     Dates: start: 20130912, end: 20131205
  21. ONDANSETRON [Concomitant]
     Active Substance: ONDANSETRON
     Indication: VOMITING
     Route: 065
     Dates: start: 20131225, end: 20131230

REACTIONS (6)
  - Rectal haemorrhage [Recovered/Resolved with Sequelae]
  - Hypokalaemia [Recovered/Resolved]
  - Pneumonia aspiration [Recovered/Resolved with Sequelae]
  - Neutropenic sepsis [Recovered/Resolved]
  - Skin ulcer [Recovered/Resolved]
  - Rectal haemorrhage [Recovered/Resolved]

NARRATIVE: CASE EVENT DATE: 20131219
